FAERS Safety Report 8905214 (Version 1)
Quarter: 2012Q4

REPORT INFORMATION
  Report Type: 
  Country: CA (occurrence: CA)
  Receive Date: 20121111
  Receipt Date: 20121111
  Transmission Date: 20130627
  Serious: Yes (Other)
  Sender: FDA-Public Use
  Company Number: PHMT2007CA01864

PATIENT
  Sex: Male

DRUGS (3)
  1. SANDOSTATIN LAR [Suspect]
     Indication: ACROMEGALY
     Dosage: 20 mg, QMO
     Route: 030
     Dates: start: 20060810
  2. SANDOSTATIN LAR [Suspect]
     Dosage: 30 mg, QMO
     Route: 030
  3. HYDROCORTISONE [Concomitant]

REACTIONS (20)
  - Flank pain [Unknown]
  - Vomiting [Unknown]
  - Insulin-like growth factor increased [Unknown]
  - Nausea [Unknown]
  - Back pain [Unknown]
  - Weight decreased [Unknown]
  - Groin pain [Unknown]
  - Testicular disorder [Unknown]
  - Loss of libido [Unknown]
  - Erectile dysfunction [Unknown]
  - Abdominal distension [Unknown]
  - Scrotal swelling [Unknown]
  - Lethargy [Unknown]
  - Psychomotor hyperactivity [Unknown]
  - Pain [Unknown]
  - Scrotal pain [Unknown]
  - Acne [Unknown]
  - Abdominal discomfort [Unknown]
  - Fatigue [Unknown]
  - Rash [Unknown]
